FAERS Safety Report 6524807-X (Version None)
Quarter: 2010Q1

REPORT INFORMATION
  Report Type: 
  Country: None (occurrence: None)
  Receive Date: 20100104
  Receipt Date: 20091218
  Transmission Date: 20100710
  Serious: No
  Sender: FDA-Public Use
  Company Number: US-B.I. PHARMACEUTICALS,INC./RIDGEFIELD-2009-BP-14021BP

PATIENT
  Sex: Male

DRUGS (6)
  1. SPIRIVA [Suspect]
     Indication: CHRONIC OBSTRUCTIVE PULMONARY DISEASE
     Dosage: 18 MCG
     Route: 055
     Dates: start: 20050101
  2. FOLIC ACID [Concomitant]
     Indication: CROHN'S DISEASE
     Dosage: 1 MG
  3. SULFASALAZINE [Concomitant]
     Indication: CROHN'S DISEASE
  4. CYANOCOBALAMIN [Concomitant]
  5. LEVOTHYROXINE SODIUM [Concomitant]
  6. HYDROCHLOROTHIAZIDE [Concomitant]

REACTIONS (5)
  - HYPERTENSION [None]
  - HYPOTHYROIDISM [None]
  - PRURITUS GENERALISED [None]
  - PSORIASIS [None]
  - SCAB [None]
